FAERS Safety Report 8367132-7 (Version None)
Quarter: 2012Q1

REPORT INFORMATION
  Report Type: 
  Country: None (occurrence: None)
  Receive Date: 20120323
  Receipt Date: 20110722
  Transmission Date: 20120608
  Serious: Yes (Death, Hospitalization, Other)
  Sender: FDA-Public Use
  Company Number: 163-21880-11072738

PATIENT
  Age: 76 Year
  Sex: Male
  Weight: 84.369 kg

DRUGS (3)
  1. ZOFRAN [Concomitant]
  2. LEVAQUIN (LEVOFLOXACIN)(UNKNOWN) [Concomitant]
  3. REVLIMID [Suspect]
     Indication: MYELODYSPLASTIC SYNDROME
     Dosage: 10 MG, D1-7, 7 DAYS OFF, THEN REPEAT, PO
     Route: 048
     Dates: start: 20100715, end: 20110501

REACTIONS (2)
  - PNEUMONIA [None]
  - FULL BLOOD COUNT DECREASED [None]
